FAERS Safety Report 6086747-2 (Version None)
Quarter: 2009Q1

REPORT INFORMATION
  Report Type: 
  Country: None (occurrence: None)
  Receive Date: 20090213
  Receipt Date: 20090128
  Transmission Date: 20090719
  Serious: Yes (Other)
  Sender: FDA-Public Use
  Company Number: B0557737A

PATIENT
  Sex: Female

DRUGS (1)
  1. VALACYCLOVIR HCL [Suspect]
     Indication: GENITAL HERPES

REACTIONS (4)
  - DELUSION [None]
  - GRANDIOSITY [None]
  - MOOD ALTERED [None]
  - PSYCHOTIC DISORDER [None]
